FAERS Safety Report 10142688 (Version 1)
Quarter: 2014Q2

REPORT INFORMATION
  Report Type: Spontaneous
  Country: US (occurrence: None)
  Receive Date: 20140425
  Receipt Date: 20140425
  Transmission Date: 20141212
  Serious: Yes (Other)
  Sender: FDA-Public Use
  Company Number: 2013SA081091

PATIENT
  Age: 64 Year
  Sex: Female

DRUGS (1)
  1. AUBAGIO [Suspect]
     Indication: MULTIPLE SCLEROSIS
     Route: 048
     Dates: start: 20130409

REACTIONS (8)
  - Multiple sclerosis [None]
  - Urinary incontinence [None]
  - Constipation [None]
  - Rotator cuff repair [None]
  - Activities of daily living impaired [None]
  - Muscular weakness [None]
  - Back disorder [None]
  - Condition aggravated [None]
